FAERS Safety Report 8999063 (Version 1)
Quarter: 2013Q1

REPORT INFORMATION
  Report Type: Spontaneous
  Country: US (occurrence: US)
  Receive Date: 20130103
  Receipt Date: 20130103
  Transmission Date: 20140127
  Serious: No
  Sender: FDA-Public Use
  Company Number: PHEH2012US025670

PATIENT
  Age: 61 Year
  Sex: Female

DRUGS (5)
  1. TASIGNA [Suspect]
     Indication: CHRONIC MYELOID LEUKAEMIA
     Dosage: 300 MG, QOD
     Route: 048
     Dates: start: 20120707, end: 20121228
  2. CELEBREX [Concomitant]
  3. PRILOSEC [Concomitant]
  4. PANTOPRAZOLE [Concomitant]
  5. VITAMIN D [Concomitant]
     Dosage: UNK

REACTIONS (3)
  - Rash [Not Recovered/Not Resolved]
  - Pruritus [Not Recovered/Not Resolved]
  - Erythema [Not Recovered/Not Resolved]
